FAERS Safety Report 9404784 (Version 1)
Quarter: 2013Q3

REPORT INFORMATION
  Report Type: Spontaneous
  Country: US (occurrence: None)
  Receive Date: 20130716
  Receipt Date: 20130716
  Transmission Date: 20140515
  Serious: Yes (Life-Threatening, Other)
  Sender: FDA-Public Use
  Company Number: None

PATIENT
  Age: 21 Year
  Sex: Female
  Weight: 68.04 kg

DRUGS (1)
  1. VIORELE [Suspect]
     Indication: CONTRACEPTION
     Dates: start: 201207, end: 20130505

REACTIONS (12)
  - Rash [None]
  - Night sweats [None]
  - Insomnia [None]
  - Irritability [None]
  - Headache [None]
  - Weight increased [None]
  - Local swelling [None]
  - Oedema peripheral [None]
  - Oedema peripheral [None]
  - Swelling [None]
  - Swelling face [None]
  - Pharyngeal oedema [None]
